FAERS Safety Report 4595716-0 (Version None)
Quarter: 2005Q1

REPORT INFORMATION
  Report Type: 
  Country: None (occurrence: None)
  Receive Date: 20050224
  Receipt Date: 20050208
  Transmission Date: 20050727
  Serious: Yes (Hospitalization)
  Sender: FDA-Public Use
  Company Number: 2005EU000229

PATIENT
  Sex: Female

DRUGS (3)
  1. PROGRAF [Suspect]
     Indication: RENAL TRANSPLANT
     Dosage: 20.00 MG, BID; ORAL (SEE IMAGE)
     Route: 048
     Dates: end: 20040702
  2. PROGRAF [Suspect]
     Indication: RENAL TRANSPLANT
     Dosage: 20.00 MG, BID; ORAL (SEE IMAGE)
     Route: 048
     Dates: start: 20040703, end: 20040704
  3. PROGRAF [Suspect]
     Indication: RENAL TRANSPLANT
     Dosage: 20.00 MG, BID; ORAL (SEE IMAGE)
     Route: 048
     Dates: start: 20040705

REACTIONS (6)
  - ABORTION SPONTANEOUS [None]
  - DRUG EXPOSURE DURING PREGNANCY [None]
  - MALAISE [None]
  - MEDICATION ERROR [None]
  - OVERDOSE [None]
  - PREGNANCY [None]
